FAERS Safety Report 20665312 (Version 7)
Quarter: 2023Q1

REPORT INFORMATION
  Report Type: Spontaneous
  Country: US (occurrence: US)
  Receive Date: 20220401
  Receipt Date: 20230223
  Transmission Date: 20230418
  Serious: Yes (Hospitalization)
  Sender: FDA-Public Use
  Company Number: US-BRISTOL-MYERS SQUIBB COMPANY-2022-011920

PATIENT
  Age: 67 Year
  Sex: Female

DRUGS (2)
  1. REVLIMID [Suspect]
     Active Substance: LENALIDOMIDE
     Indication: Plasma cell myeloma
     Dosage: TAKE 1 CAPSULE BY MOUTH EVERY DAY ON DAYS 1-21 OF EACH 28 DAY CYCLE.
     Route: 048
     Dates: start: 20220309
  2. REVLIMID [Suspect]
     Active Substance: LENALIDOMIDE
     Dosage: TAKE 1 CAPSULE BY MOUTH EVERY DAY ON DAYS 1-21 OF EACH 28 DAY CYCLE.
     Route: 048
     Dates: start: 20220309

REACTIONS (5)
  - Dermal cyst [Unknown]
  - Gallbladder disorder [Recovered/Resolved]
  - Heat exhaustion [Recovered/Resolved]
  - Malaise [Unknown]
  - Diarrhoea [Unknown]
